APPROVED DRUG PRODUCT: RASUVO
Active Ingredient: METHOTREXATE
Strength: 27.5MG/0.55ML (27.5MG/0.55ML)
Dosage Form/Route: SOLUTION;SUBCUTANEOUS
Application: N205776 | Product #009
Applicant: MEDEXUS PHARMA INC
Approved: Jul 10, 2014 | RLD: Yes | RS: No | Type: DISCN

PATENTS:
Patent 8664231 | Expires: Jun 1, 2029